FAERS Safety Report 10200694 (Version 1)
Quarter: 2014Q2

REPORT INFORMATION
  Report Type: Spontaneous
  Country: US (occurrence: US)
  Receive Date: 20140528
  Receipt Date: 20140528
  Transmission Date: 20141212
  Serious: Yes (Other)
  Sender: FDA-Public Use
  Company Number: US-UCBSA-123013

PATIENT
  Age: 23 Year
  Sex: Female

DRUGS (3)
  1. LEVETIRACETAM [Suspect]
  2. PHENOBARBITAL [Concomitant]
  3. ZONISAMIDE [Concomitant]

REACTIONS (1)
  - Status epilepticus [Recovered/Resolved]
